FAERS Safety Report 20609433 (Version 2)
Quarter: 2022Q3

REPORT INFORMATION
  Report Type: Report from Study
  Country: GB (occurrence: GB)
  Receive Date: 20220318
  Receipt Date: 20220920
  Transmission Date: 20221026
  Serious: Yes (Hospitalization, Other)
  Sender: FDA-Public Use
  Company Number: GB-BAXTER-2021BAX017563

PATIENT
  Age: 8 Year
  Sex: Male
  Weight: 20.2 kg

DRUGS (79)
  1. CYCLOPHOSPHAMIDE [Suspect]
     Active Substance: CYCLOPHOSPHAMIDE
     Indication: Recurrent cancer
     Dosage: 210 MG QD (1 IN 1 DAY) (4 DAYS)
     Route: 042
     Dates: start: 20210401, end: 20210405
  2. CYCLOPHOSPHAMIDE [Suspect]
     Active Substance: CYCLOPHOSPHAMIDE
     Indication: Refractory cancer
     Dosage: 210 MILLIGRAM,QD
     Route: 042
     Dates: start: 20210504
  3. CYCLOPHOSPHAMIDE [Suspect]
     Active Substance: CYCLOPHOSPHAMIDE
     Indication: Neuroblastoma
     Dosage: PRN, PAST MEDICATION
     Route: 065
     Dates: start: 20190202, end: 20190413
  4. CYCLOPHOSPHAMIDE [Suspect]
     Active Substance: CYCLOPHOSPHAMIDE
     Indication: Neoplasm malignant
  5. VENETOCLAX [Suspect]
     Active Substance: VENETOCLAX
     Indication: Recurrent cancer
     Dosage: 350 MG (350 MG- 2) (8 DAYS), QD
     Route: 048
     Dates: start: 20210330, end: 20210407
  6. VENETOCLAX [Suspect]
     Active Substance: VENETOCLAX
     Indication: Refractory cancer
     Dosage: QD, DOSAGE FORM: TABLET,
     Route: 065
     Dates: start: 20210504
  7. VENETOCLAX [Suspect]
     Active Substance: VENETOCLAX
     Indication: Neoplasm malignant
     Dosage: 170 MILLIGRAM,QD
     Route: 048
  8. VENETOCLAX [Suspect]
     Active Substance: VENETOCLAX
     Dosage: 350 MILLIGRAM,QD
     Route: 048
     Dates: start: 20210331
  9. TOPOTECAN HYDROCHLORIDE [Suspect]
     Active Substance: TOPOTECAN HYDROCHLORIDE
     Indication: Recurrent cancer
     Dosage: 0.64 MILLIGRAM,QD
     Route: 042
     Dates: start: 20210504
  10. TOPOTECAN HYDROCHLORIDE [Suspect]
     Active Substance: TOPOTECAN HYDROCHLORIDE
     Indication: Refractory cancer
     Dosage: 0.64 MG/M2,QD
     Route: 042
     Dates: start: 20210401, end: 20210508
  11. TOPOTECAN HYDROCHLORIDE [Suspect]
     Active Substance: TOPOTECAN HYDROCHLORIDE
     Dosage: 0.63 MG/M2,QD
     Route: 042
     Dates: start: 20210628
  12. TOPOTECAN HYDROCHLORIDE [Suspect]
     Active Substance: TOPOTECAN HYDROCHLORIDE
     Dosage: 0.65 MG/M2,QD
     Route: 042
     Dates: start: 20210601, end: 20210605
  13. TOPOTECAN HYDROCHLORIDE [Suspect]
     Active Substance: TOPOTECAN HYDROCHLORIDE
     Dosage: 0.75 MG/M2 (MAXIMUN 5 DAYS EVERY 21 DAYS), PRN
     Route: 042
  14. OMEPRAZOLE [Concomitant]
     Active Substance: OMEPRAZOLE
     Indication: Dyspepsia
     Dosage: 20 MILLIGRAM,QD
     Route: 048
     Dates: start: 20210310
  15. ACETAMINOPHEN [Concomitant]
     Active Substance: ACETAMINOPHEN
     Indication: Pain prophylaxis
     Dosage: 330 MILLIGRAM,QD
     Route: 048
     Dates: start: 20210324
  16. ACETAMINOPHEN [Concomitant]
     Active Substance: ACETAMINOPHEN
     Indication: Prophylaxis
     Dosage: 330 MILLIGRAM,QD
     Route: 048
     Dates: start: 20210629
  17. ACETAMINOPHEN [Concomitant]
     Active Substance: ACETAMINOPHEN
     Indication: Pain
     Dosage: PRN
     Route: 048
     Dates: start: 20210324
  18. ACETAMINOPHEN [Concomitant]
     Active Substance: ACETAMINOPHEN
     Indication: Prophylaxis
  19. DEXAMETHASONE [Concomitant]
     Active Substance: DEXAMETHASONE
     Indication: Analgesic therapy
     Dosage: 4 MG (2 MG, BID)
     Route: 042
     Dates: start: 20210406
  20. DEXAMETHASONE [Concomitant]
     Active Substance: DEXAMETHASONE
     Indication: Prophylaxis
     Dosage: 4 MILLIGRAM,QD
     Route: 048
     Dates: start: 20210627
  21. DEXAMETHASONE [Concomitant]
     Active Substance: DEXAMETHASONE
     Indication: Illness
     Dosage: 4 MILLIGRAM,QD
     Route: 042
     Dates: start: 20210504, end: 20210605
  22. DEXAMETHASONE [Concomitant]
     Active Substance: DEXAMETHASONE
     Indication: Analgesic therapy
     Dosage: 4 MILLIGRAM,QD
     Route: 048
     Dates: start: 20210407
  23. DEXAMETHASONE [Concomitant]
     Active Substance: DEXAMETHASONE
     Indication: Prophylaxis of nausea and vomiting
     Dosage: 8 MILLIGRAM,QD
     Route: 048
     Dates: start: 20210330, end: 20210403
  24. DEXAMETHASONE [Concomitant]
     Active Substance: DEXAMETHASONE
     Indication: Nausea
     Dosage: 6 MILLIGRAM,QD
     Route: 048
     Dates: start: 20210726
  25. DEXAMETHASONE [Concomitant]
     Active Substance: DEXAMETHASONE
     Dosage: 3.8 MILLIGRAM,QD
     Route: 048
     Dates: start: 20210605, end: 20210609
  26. DEXAMETHASONE [Concomitant]
     Active Substance: DEXAMETHASONE
     Dosage: 4 MILLIGRAM,QD
     Route: 042
     Dates: start: 20210531, end: 20210606
  27. MIDAZOLAM [Concomitant]
     Active Substance: MIDAZOLAM
     Indication: Pain
     Dosage: 2 MILLIGRAM,PRN
     Route: 048
     Dates: start: 20210321
  28. CYCLIZINE [Concomitant]
     Active Substance: CYCLIZINE
     Indication: Antiemetic supportive care
     Dosage: 75 MG (25 MG, 3X A DAY)
     Route: 042
     Dates: start: 20210330
  29. CYCLIZINE [Concomitant]
     Active Substance: CYCLIZINE
     Dosage: 75 MG (25 MG, 3X A DAY)
     Route: 048
     Dates: start: 20210602
  30. CYCLIZINE [Concomitant]
     Active Substance: CYCLIZINE
     Dosage: 20 MG, QD,3 IN 1 DAY
     Route: 048
     Dates: start: 20210921
  31. ONDANSETRON [Concomitant]
     Active Substance: ONDANSETRON
     Indication: Antiemetic supportive care
     Dosage: 12 MG (4 MG, 3X A DAY)
     Route: 042
     Dates: start: 20210330
  32. ONDANSETRON [Concomitant]
     Active Substance: ONDANSETRON
     Dosage: 12 MG (4 MG, 3X A DAY)
     Route: 042
     Dates: start: 20210602
  33. CHLORPHENIRAMINE MALEATE [Concomitant]
     Active Substance: CHLORPHENIRAMINE MALEATE
     Indication: Allergy prophylaxis
     Dosage: 4 MILLIGRAM,PRN
     Route: 042
     Dates: start: 20210329
  34. CHLORPHENIRAMINE MALEATE [Concomitant]
     Active Substance: CHLORPHENIRAMINE MALEATE
     Indication: Hypersensitivity
     Dosage: 4 MILLIGRAM,PRN
     Route: 048
     Dates: start: 20210601
  35. CHOLECALCIFEROL [Concomitant]
     Active Substance: CHOLECALCIFEROL
     Indication: Vitamin supplementation
     Dosage: 1 CAPSULE, 3X A WEEK
     Route: 048
     Dates: start: 20210331
  36. co- trimoxazole [Concomitant]
     Indication: Antibiotic prophylaxis
     Dosage: 360 MILLIGRAM,QD
     Route: 048
     Dates: start: 20210331
  37. GABAPENTIN [Concomitant]
     Active Substance: GABAPENTIN
     Indication: Pain
     Dosage: 600 MG (200 MG, 3X A DAY)
     Route: 048
     Dates: start: 20210329
  38. HEPARIN [Concomitant]
     Active Substance: HEPARIN SODIUM
     Indication: Catheter management
     Dosage: 10 UNITS/ML, 3X A DAY
     Route: 042
     Dates: start: 20210329
  39. METOCLOPRAMIDE [Concomitant]
     Active Substance: METOCLOPRAMIDE
     Indication: Nausea
     Dosage: 15 MG (5 MG, 3X A DAY)
     Route: 048
     Dates: start: 20210508
  40. METOCLOPRAMIDE [Concomitant]
     Active Substance: METOCLOPRAMIDE
     Indication: Antiemetic supportive care
     Dosage: 5 MILLIGRAM,QD
     Route: 042
     Dates: start: 20210919
  41. METOCLOPRAMIDE [Concomitant]
     Active Substance: METOCLOPRAMIDE
     Indication: Prophylaxis of nausea and vomiting
     Dosage: 15 MILLIGRAM,3X A DAY
     Route: 042
     Dates: start: 20210330, end: 20210507
  42. METOCLOPRAMIDE [Concomitant]
     Active Substance: METOCLOPRAMIDE
     Dosage: 15 MG (3 MG, 3 IN 1 D) TID
     Route: 042
  43. LIPEGFILGRASTIM [Concomitant]
     Active Substance: LIPEGFILGRASTIM
     Indication: Prophylaxis
     Dosage: 2.5 MILLIGRAM,QD
     Route: 058
     Dates: start: 20210509, end: 20210510
  44. LIPEGFILGRASTIM [Concomitant]
     Active Substance: LIPEGFILGRASTIM
     Dosage: 2.5 MILLIGRAM,PRN
     Route: 058
     Dates: start: 20210703
  45. LIPEGFILGRASTIM [Concomitant]
     Active Substance: LIPEGFILGRASTIM
     Dosage: 2.5 MILLIGRAM,PRN
     Route: 065
     Dates: start: 20210703
  46. DOCUSATE [Concomitant]
     Active Substance: DOCUSATE
     Indication: Constipation prophylaxis
     Dosage: 300 MG (100 MG, 3X A DAY)
     Route: 048
     Dates: start: 20210508
  47. DOCUSATE [Concomitant]
     Active Substance: DOCUSATE
     Dosage: 300 MILLIGRAM,QD
     Route: 048
     Dates: start: 20210628
  48. DOCUSATE [Concomitant]
     Active Substance: DOCUSATE
     Dosage: 50 MILLIGRAM,QD
     Route: 048
     Dates: start: 20210726
  49. DOCUSATE [Concomitant]
     Active Substance: DOCUSATE
     Dosage: 1000 MILLIGRAM,QD
     Route: 048
     Dates: start: 20210329, end: 20210508
  50. morphine sustained release [Concomitant]
     Indication: Pain
     Dosage: 10 MILLIGRAM,PRN
     Route: 048
     Dates: start: 20210509
  51. morphine sustained release [Concomitant]
     Dosage: 40 MG (20 MG, BID)
     Route: 048
     Dates: start: 20210517
  52. MOVICOL [Concomitant]
     Active Substance: POLYETHYLENE GLYCOL 3350\POTASSIUM CHLORIDE\SODIUM BICARBONATE\SODIUM CHLORIDE
     Indication: Constipation
     Dosage: 1-2 SACHETS, PRN
     Route: 048
     Dates: start: 20210517
  53. TINZAPARIN [Concomitant]
     Active Substance: TINZAPARIN
     Indication: Anticoagulant therapy
     Dosage: 6000 IU (INTERNATIONAL UNIT),QD
     Route: 058
     Dates: start: 20210526
  54. SODIUM CHLORIDE [Concomitant]
     Active Substance: SODIUM CHLORIDE
     Indication: Tumour lysis syndrome
     Dosage: 375 ML,PRN
     Route: 042
     Dates: start: 20210330, end: 20210407
  55. ALLOPURINOL [Concomitant]
     Active Substance: ALLOPURINOL
     Indication: Tumour lysis syndrome
     Dosage: 240 MILLIGRAM,QD
     Route: 048
     Dates: start: 20210330, end: 20210404
  56. CIPROFLOXACIN [Concomitant]
     Active Substance: CIPROFLOXACIN
     Indication: Soft tissue infection
     Dosage: 500 MILLIGRAM,BID
     Route: 048
     Dates: start: 20210124
  57. SCOPOLAMINE [Concomitant]
     Active Substance: SCOPOLAMINE
     Indication: Prophylaxis of nausea and vomiting
     Dosage: 0.5 MG, PRN
     Route: 061
     Dates: start: 20210922
  58. SCOPOLAMINE [Concomitant]
     Active Substance: SCOPOLAMINE
     Indication: Prophylaxis of nausea and vomiting
     Dosage: 0.5 MG, PRN
     Route: 061
     Dates: start: 20210630
  59. SCOPOLAMINE [Concomitant]
     Active Substance: SCOPOLAMINE
     Indication: Prophylaxis of nausea and vomiting
     Dosage: 1 MG, PRN
     Route: 061
     Dates: start: 20210601
  60. LEVOMEPROMAZINE [Concomitant]
     Active Substance: LEVOMEPROMAZINE
     Indication: Antiemetic supportive care
     Dosage: 6 MG, BID (3 MG, 2 IN 1 D)
     Route: 048
  61. LEVOMEPROMAZINE [Concomitant]
     Active Substance: LEVOMEPROMAZINE
     Indication: Prophylaxis of nausea and vomiting
     Dosage: 2.2 MILLIGRAM,QD
     Route: 042
  62. LEVOMEPROMAZINE [Concomitant]
     Active Substance: LEVOMEPROMAZINE
     Dosage: 2.2 MILLIGRAM,QD
     Route: 042
     Dates: start: 20210628
  63. LEVOMEPROMAZINE [Concomitant]
     Active Substance: LEVOMEPROMAZINE
     Dosage: 2.2 MG (1.1 MG, PRN)
     Route: 042
     Dates: start: 20210601
  64. LEVOMEPROMAZINE [Concomitant]
     Active Substance: LEVOMEPROMAZINE
     Dosage: 2.2 MG, BID (1.1 MG, 2 IN D)
     Route: 065
     Dates: start: 20210628
  65. LINEZOLID [Concomitant]
     Active Substance: LINEZOLID
     Indication: Soft tissue infection
     Dosage: 600 MG, TID (200 MG, 3 IN 1 D)
     Route: 065
  66. LIPEGFILGRASTIM [Concomitant]
     Active Substance: LIPEGFILGRASTIM
     Indication: Prophylaxis
     Dosage: PRN
     Route: 065
  67. MORPHINE [Concomitant]
     Active Substance: MORPHINE
     Indication: Pain
     Dosage: 20 MG, PRN
     Route: 048
     Dates: start: 20210509
  68. MORPHINE [Concomitant]
     Active Substance: MORPHINE
     Indication: Pain in extremity
     Dosage: 120 MG, QD (SUSTAINED RELEASE), PRN
     Route: 048
     Dates: start: 20210504, end: 20210509
  69. MORPHINE [Concomitant]
     Active Substance: MORPHINE
     Dosage: 80 MG, QD (SUSTAINED RELEASE)
     Route: 048
     Dates: end: 20210512
  70. MORPHINE [Concomitant]
     Active Substance: MORPHINE
     Dosage: 10 MG (AS REQUIRED) PRN
     Route: 048
     Dates: start: 20210509
  71. MORPHINE [Concomitant]
     Active Substance: MORPHINE
     Dosage: 10 MILLIGRAM,BID
     Route: 048
     Dates: start: 20210628
  72. MORPHINE [Concomitant]
     Active Substance: MORPHINE
     Dosage: 10 MG, PRN
     Route: 048
     Dates: start: 20210628
  73. MORPHINE [Concomitant]
     Active Substance: MORPHINE
     Dosage: 60 MG, QD (SUSTAINED RELEASE)
     Route: 048
     Dates: start: 20210512, end: 20210517
  74. MORPHINE [Concomitant]
     Active Substance: MORPHINE
     Dosage: 40 MG (20 MG, BID)
     Route: 048
     Dates: start: 20210517
  75. MORPHINE [Concomitant]
     Active Substance: MORPHINE
     Indication: Pain
     Dosage: 30 MILLIGRAM,6X A DAY
     Route: 048
     Dates: start: 20210324, end: 20210504
  76. MORPHINE [Concomitant]
     Active Substance: MORPHINE
     Dosage: 10 MG, PRN
     Route: 048
     Dates: start: 20210629
  77. MORPHINE [Concomitant]
     Active Substance: MORPHINE
     Dosage: 10 MG, PRN
     Route: 048
     Dates: start: 20210806
  78. PIPERACILLIN SODIUM\TAZOBACTAM SODIUM [Concomitant]
     Active Substance: PIPERACILLIN SODIUM\TAZOBACTAM SODIUM
     Indication: Infection
     Dosage: 1.8 MILLIGRAM,QD
     Route: 042
  79. TEICOPLANIN [Concomitant]
     Active Substance: TEICOPLANIN
     Indication: Infection
     Dosage: PRN
     Route: 042
     Dates: start: 20210808

REACTIONS (11)
  - Ear pain [Unknown]
  - Cellulitis [Unknown]
  - Febrile neutropenia [Recovered/Resolved]
  - Oropharyngeal pain [Unknown]
  - Vomiting [Unknown]
  - Pyrexia [Not Recovered/Not Resolved]
  - Nodule [Unknown]
  - Product use issue [Unknown]
  - Groin pain [Unknown]
  - Palpitations [Unknown]
  - White blood cell count decreased [Unknown]

NARRATIVE: CASE EVENT DATE: 20210609
